FAERS Safety Report 7934235-8 (Version None)
Quarter: 2011Q4

REPORT INFORMATION
  Report Type: 
  Country: None (occurrence: None)
  Receive Date: 20111122
  Receipt Date: 20110825
  Transmission Date: 20120403
  Serious: No
  Sender: FDA-Public Use
  Company Number: US-BAYER-2011-082092

PATIENT

DRUGS (3)
  1. ALEVE (CAPLET) [Suspect]
     Indication: TOOTHACHE
  2. ALEVE (CAPLET) [Suspect]
     Indication: DYSMENORRHOEA
  3. ALEVE (CAPLET) [Suspect]
     Indication: HEADACHE

REACTIONS (3)
  - HEADACHE [None]
  - TOOTHACHE [None]
  - DYSMENORRHOEA [None]
